FAERS Safety Report 4554278-4 (Version None)
Quarter: 2004Q4

REPORT INFORMATION
  Report Type: 
  Country: None (occurrence: None)
  Receive Date: 20041227
  Receipt Date: 20041129
  Transmission Date: 20050328
  Serious: Yes (Hospitalization)
  Sender: FDA-Public Use
  Company Number: 04P-163-0281706-00

PATIENT
  Age: 64 Year
  Sex: Female
  Weight: 65.7716 kg

DRUGS (12)
  1. HUMIRA [Suspect]
     Indication: RHEUMATOID ARTHRITIS
     Dosage: SEE IMAGE
     Route: 058
     Dates: start: 20030101, end: 20040901
  2. HUMIRA [Suspect]
     Indication: RHEUMATOID ARTHRITIS
     Dosage: SEE IMAGE
     Route: 058
     Dates: start: 20041001, end: 20041101
  3. PREDNISONE [Concomitant]
  4. LEFLUNOMIDE [Concomitant]
  5. AZATHIOPRINE [Concomitant]
  6. DIOVAN [Concomitant]
  7. POTASSIUM [Concomitant]
  8. LEVOTHYROXINE SODIUM [Concomitant]
  9. TOCOPHEROL CONCENTRATE CAP [Concomitant]
  10. MULTI-VITAMINS [Concomitant]
  11. CALCIUM GLUCONATE [Concomitant]
  12. BUMETANIDE [Concomitant]

REACTIONS (1)
  - CELLULITIS [None]
